FAERS Safety Report 5101364-6 (Version None)
Quarter: 2006Q3

REPORT INFORMATION
  Report Type: 
  Country: None (occurrence: None)
  Receive Date: 20060906
  Receipt Date: 20060824
  Transmission Date: 20061208
  Serious: Yes (Other)
  Sender: FDA-Public Use
  Company Number: 2006090166

PATIENT
  Age: 64 Year
  Sex: Female
  Weight: 69.8539 kg

DRUGS (1)
  1. CARDURA XL [Suspect]
     Indication: HYPERTENSION
     Dosage: 8 MG (4 MG, 2 IN 1 D), ORAL
     Route: 048

REACTIONS (6)
  - DIARRHOEA [None]
  - HEADACHE [None]
  - NAUSEA [None]
  - PHARMACEUTICAL PRODUCT COMPLAINT [None]
  - VISION BLURRED [None]
  - VISUAL ACUITY REDUCED [None]
